FAERS Safety Report 12116079 (Version 1)
Quarter: 2016Q1

REPORT INFORMATION
  Report Type: Report from Study
  Country: US (occurrence: US)
  Receive Date: 20160225
  Receipt Date: 20160225
  Transmission Date: 20160526
  Serious: Yes (Other)
  Sender: FDA-Public Use
  Company Number: US-GILEAD-2016-0199895

PATIENT
  Age: 66 Year
  Sex: Male

DRUGS (1)
  1. ADEFOVIR DIPIVOXIL. [Suspect]
     Active Substance: ADEFOVIR DIPIVOXIL
     Indication: HEPATITIS B
     Dosage: 10 UNK, UNK
     Route: 048

REACTIONS (3)
  - Oropharyngeal pain [Unknown]
  - Non-Hodgkin^s lymphoma [Unknown]
  - Liver function test increased [Unknown]
